FAERS Safety Report 14410245 (Version 1)
Quarter: 2018Q1

REPORT INFORMATION
  Report Type: Spontaneous
  Country: US (occurrence: US)
  Receive Date: 20180116
  Receipt Date: 20180116
  Transmission Date: 20180509
  Serious: Yes (Other)
  Sender: FDA-Public Use
  Company Number: None

PATIENT
  Age: 67 Year
  Sex: Female

DRUGS (1)
  1. NINLARO [Suspect]
     Active Substance: IXAZOMIB CITRATE
     Indication: PLASMA CELL MYELOMA
     Dosage: FREQUENCY - 1 QD ON DAYS 1,8,15 OF 28 DAY CYCLE?
     Route: 048
     Dates: start: 20171003

REACTIONS (3)
  - Lacrimation increased [None]
  - Sneezing [None]
  - Cough [None]

NARRATIVE: CASE EVENT DATE: 20171116
